FAERS Safety Report 6306166-0 (Version None)
Quarter: 2009Q3

REPORT INFORMATION
  Report Type: 
  Country: None (occurrence: None)
  Receive Date: 20090812
  Receipt Date: 20090806
  Transmission Date: 20100115
  Serious: Yes (Hospitalization, Disabling)
  Sender: FDA-Public Use
  Company Number: SK-ROCHE-639002

PATIENT
  Sex: Male

DRUGS (5)
  1. XELODA [Suspect]
     Indication: RECTAL CANCER METASTATIC
     Dosage: DOSE: 4000 MG, DAILY FOR 2 WEEKS
     Route: 065
     Dates: start: 20090420, end: 20090616
  2. XELODA [Suspect]
     Route: 065
     Dates: start: 20090716
  3. AVASTIN [Suspect]
     Indication: RECTAL CANCER METASTATIC
     Route: 065
     Dates: start: 20090511, end: 20090608
  4. OXALIPLATIN [Concomitant]
     Indication: RECTAL CANCER METASTATIC
     Dosage: DRUG NAME: OXALIPLATINA
     Dates: start: 20090608, end: 20090608
  5. OXALIPLATIN [Concomitant]
     Dosage: DOSE REPORTED : 150
     Dates: start: 20090806

REACTIONS (1)
  - ENTEROVESICAL FISTULA [None]
